FAERS Safety Report 7412038-0 (Version None)
Quarter: 2011Q2

REPORT INFORMATION
  Report Type: 
  Country: None (occurrence: None)
  Receive Date: 20110413
  Receipt Date: 20110404
  Transmission Date: 20111010
  Serious: Yes (Hospitalization)
  Sender: FDA-Public Use
  Company Number: CA-ASTRAZENECA-2011SE12151

PATIENT
  Age: 73 Year
  Sex: Male

DRUGS (1)
  1. NEXIUM [Suspect]
     Indication: GASTROOESOPHAGEAL REFLUX DISEASE
     Route: 048
     Dates: start: 20100101

REACTIONS (4)
  - DRUG EFFECT DECREASED [None]
  - OESOPHAGEAL MASS [None]
  - OESOPHAGEAL STENOSIS [None]
  - THROAT IRRITATION [None]
